FAERS Safety Report 13471396 (Version 1)
Quarter: 2017Q2

REPORT INFORMATION
  Report Type: Spontaneous
  Country: DE (occurrence: DE)
  Receive Date: 20170424
  Receipt Date: 20170424
  Transmission Date: 20170830
  Serious: Yes (Other)
  Sender: FDA-Public Use
  Company Number: DE-ACCORD-050549

PATIENT
  Age: 61 Year
  Sex: Female

DRUGS (2)
  1. ATORVASTATIN [Suspect]
     Active Substance: ATORVASTATIN
     Indication: HYPERCHOLESTEROLAEMIA
     Route: 048
     Dates: start: 201612, end: 201701
  2. SIMVASTATIN. [Suspect]
     Active Substance: SIMVASTATIN
     Indication: HYPERCHOLESTEROLAEMIA
     Route: 048
     Dates: start: 201606, end: 2017

REACTIONS (4)
  - Visual impairment [Recovered/Resolved]
  - Restlessness [Recovered/Resolved]
  - Tinnitus [Recovered/Resolved]
  - Myalgia [Recovered/Resolved]
